FAERS Safety Report 6474201 (Version 2)
Quarter: 2013Q2

REPORT INFORMATION
  Report Type: Report from Study
  Country: DE (occurrence: DE)
  Receive Date: 20071126
  Receipt Date: 20130416
  Transmission Date: 20140414
  Serious: Yes (Hospitalization)
  Sender: FDA-Public Use
  Company Number: PHHO2007DE03301

PATIENT
  Age: 47 Year
  Sex: Female
  Weight: 65 kg

DRUGS (4)
  1. ZOLEDRONATE [Suspect]
     Indication: BREAST CANCER
     Dosage: 4 MG, UNK
     Route: 042
     Dates: start: 20061106, end: 20061106
  2. CALCIUM [Concomitant]
  3. DEKRISTOL [Concomitant]
  4. TAMOXIFEN [Concomitant]

REACTIONS (12)
  - Transient ischaemic attack [Recovered/Resolved]
  - Vertigo [Recovered/Resolved]
  - Nausea [Recovered/Resolved]
  - Hearing impaired [Recovered/Resolved]
  - Visual impairment [Recovered/Resolved]
  - Gait disturbance [Recovered/Resolved]
  - Nystagmus [Recovered/Resolved]
  - Retching [Recovered/Resolved]
  - Extensor plantar response [Recovered/Resolved]
  - Hypotension [Recovered/Resolved]
  - Macroangiopathy [Recovered/Resolved]
  - Aortic valve stenosis [Unknown]
